FAERS Safety Report 4667368-2 (Version None)
Quarter: 2005Q2

REPORT INFORMATION
  Report Type: 
  Country: None (occurrence: None)
  Receive Date: 20050519
  Receipt Date: 20050519
  Transmission Date: 20051028
  Serious: Yes (Death, Hospitalization)
  Sender: FDA-Public Use
  Company Number: None

PATIENT
  Sex: Male
  Weight: 74.6 kg

DRUGS (2)
  1. DEXAMETHASONE [Suspect]
     Dosage: 8 MG PO BID, DAYS 0-2, Q 21 DAYS X 3
     Route: 048
     Dates: start: 20031017
  2. DOCETAXEL [Suspect]
     Dosage: 75 MG/M2 IV  OVER 60 MIN, DAY 1, Q 21 DAYS X 3
     Route: 042
     Dates: start: 20031017

REACTIONS (5)
  - CARDIO-RESPIRATORY ARREST [None]
  - FEBRILE NEUTROPENIA [None]
  - LOSS OF CONSCIOUSNESS [None]
  - PNEUMONIA [None]
  - PULMONARY OEDEMA [None]
